FAERS Safety Report 13379449 (Version 3)
Quarter: 2018Q3

REPORT INFORMATION
  Report Type: Spontaneous
  Country: ES (occurrence: ES)
  Receive Date: 20170328
  Receipt Date: 20180813
  Transmission Date: 20181010
  Serious: Yes (Other)
  Sender: FDA-Public Use
  Company Number: ES-JNJFOC-20170328554

PATIENT
  Age: 35 Year
  Sex: Male

DRUGS (10)
  1. NEORAL SANDIMMUN [Concomitant]
     Active Substance: CYCLOSPORINE
     Route: 065
  2. SINTROM [Concomitant]
     Active Substance: ACENOCOUMAROL
     Indication: DEEP VEIN THROMBOSIS
     Route: 065
  3. REMICADE [Suspect]
     Active Substance: INFLIXIMAB
     Indication: UVEITIS
     Route: 042
     Dates: start: 20161111
  4. REMICADE [Suspect]
     Active Substance: INFLIXIMAB
     Indication: UVEITIS
     Route: 042
     Dates: start: 20161125
  5. CEMIDON B6 [Concomitant]
     Active Substance: ISONIAZID\PYRIDOXINE HYDROCHLORIDE
     Route: 065
  6. ISDIBEN [Concomitant]
     Active Substance: ISOTRETINOIN
     Route: 065
  7. ATECORTIN [Suspect]
     Active Substance: HYDROCORTISONE\OXYTETRACYCLINE HYDROCHLORIDE\POLYMYXIN B SULFATE
     Indication: PREMEDICATION
     Route: 065
  8. OMEPRAZOL CINFAMED [Concomitant]
     Route: 065
  9. REMICADE [Suspect]
     Active Substance: INFLIXIMAB
     Indication: UVEITIS
     Route: 042
     Dates: start: 20170113
  10. POLARAMINE [Suspect]
     Active Substance: DEXCHLORPHENIRAMINE MALEATE
     Indication: PREMEDICATION
     Route: 065

REACTIONS (7)
  - Cyanosis [Unknown]
  - Vomiting [Recovered/Resolved]
  - Infusion related reaction [Recovered/Resolved]
  - Hypersensitivity [Unknown]
  - Eye pain [Unknown]
  - Eye irritation [Unknown]
  - Blindness [Unknown]

NARRATIVE: CASE EVENT DATE: 20170113
